FAERS Safety Report 6107499-3 (Version None)
Quarter: 2009Q1

REPORT INFORMATION
  Report Type: 
  Country: None (occurrence: None)
  Receive Date: 20090303
  Receipt Date: 20090213
  Transmission Date: 20090719
  Serious: Yes (Other)
  Sender: FDA-Public Use
  Company Number: TCM-2009-00001

PATIENT
  Sex: Male
  Weight: 51 kg

DRUGS (3)
  1. ETHAMBUTOL HCL [Suspect]
     Indication: TUBERCULOSIS
  2. RIFAMPIN [Concomitant]
  3. ISONIAZID [Concomitant]

REACTIONS (1)
  - HYPERURICAEMIA [None]
